FAERS Safety Report 8884341 (Version 1)
Quarter: 2012Q4

REPORT INFORMATION
  Report Type: 
  Country: US (occurrence: US)
  Receive Date: 20121104
  Receipt Date: 20121104
  Transmission Date: 20130627
  Serious: No
  Sender: FDA-Public Use
  Company Number: US-009507513-1210USA010081

PATIENT
  Sex: Male

DRUGS (1)
  1. SYLATRON [Suspect]
     Indication: MALIGNANT MELANOMA
     Dosage: UNK
     Dates: start: 201202, end: 2012

REACTIONS (1)
  - Inflammation [Unknown]
